FAERS Safety Report 7644855-6 (Version None)
Quarter: 2011Q3

REPORT INFORMATION
  Report Type: 
  Country: None (occurrence: None)
  Receive Date: 20110729
  Receipt Date: 20110719
  Transmission Date: 20111222
  Serious: Yes (Hospitalization)
  Sender: FDA-Public Use
  Company Number: BE-UCBSA-037424

PATIENT
  Age: 58 Year
  Sex: Female
  Weight: 53.6 kg

DRUGS (4)
  1. SULFASALAZINE [Concomitant]
     Indication: CROHN'S DISEASE
     Route: 048
     Dates: start: 20101201
  2. STEOVIT D3 [Concomitant]
     Indication: MINERAL SUPPLEMENTATION
     Dosage: 1 CO (1000/880) ONCE DAILY
     Route: 048
  3. CIMZIA [Suspect]
     Indication: CROHN'S DISEASE
     Route: 058
     Dates: start: 20110707
  4. ANGELICA [Concomitant]
     Indication: HORMONE THERAPY
     Dosage: 100 , ONCE A DAY
     Route: 048

REACTIONS (3)
  - CHEST PAIN [None]
  - SKIN REACTION [None]
  - DYSPHAGIA [None]
